FAERS Safety Report 24083989 (Version 1)
Quarter: 2024Q3

REPORT INFORMATION
  Report Type: Spontaneous
  Country: GR (occurrence: GR)
  Receive Date: 20240712
  Receipt Date: 20240712
  Transmission Date: 20241016
  Serious: No
  Sender: PIERRE FABRE MEDICAMENT
  Company Number: GR-PFM-2022-03924

PATIENT
  Age: 2 Day
  Sex: Female
  Weight: 3.4 kg

DRUGS (7)
  1. PROPRANOLOL [Suspect]
     Active Substance: PROPRANOLOL HYDROCHLORIDE
     Indication: Long QT syndrome congenital
     Dosage: 1 MG/KG/DAY
     Route: 065
  2. PROPRANOLOL [Suspect]
     Active Substance: PROPRANOLOL HYDROCHLORIDE
     Indication: Off label use
     Dosage: 2 MG/KG/DAY
     Route: 065
  3. MEXILETINE [Suspect]
     Active Substance: MEXILETINE
     Indication: Long QT syndrome congenital
     Dosage: 1.8 MG/KG/DAY
     Route: 048
  4. MEXILETINE [Suspect]
     Active Substance: MEXILETINE
     Dosage: 4.3 MG/KG/DAY
     Route: 048
  5. MEXILETINE [Suspect]
     Active Substance: MEXILETINE
     Dosage: 5 MG/KG/DAY
     Route: 048
  6. MEXILETINE [Suspect]
     Active Substance: MEXILETINE
     Dosage: 6 MG/KG/DAY
     Route: 048
  7. MEXILETINE [Suspect]
     Active Substance: MEXILETINE
     Dosage: 6.5 MG/KG/DAY
     Route: 048

REACTIONS (3)
  - Product use in unapproved indication [Unknown]
  - Product administered to patient of inappropriate age [Unknown]
  - Off label use [Unknown]
